FAERS Safety Report 16045195 (Version 1)
Quarter: 2019Q1

REPORT INFORMATION
  Report Type: Spontaneous
  Country: NO (occurrence: NO)
  Receive Date: 20190307
  Receipt Date: 20190307
  Transmission Date: 20190418
  Serious: Yes (Other)
  Sender: FDA-Public Use
  Company Number: NO-TEVA-2019-NO-1019525

PATIENT
  Age: 63 Year
  Sex: Male

DRUGS (1)
  1. RAMIPRIL ACTAVIS [Suspect]
     Active Substance: RAMIPRIL
     Dosage: 7.5 MILLIGRAM DAILY; 5MG MORNING AND 2.5MG EVENING
     Route: 048
     Dates: start: 20180801

REACTIONS (12)
  - Nasal congestion [Unknown]
  - Heart rate increased [Unknown]
  - Fatigue [Unknown]
  - Dyspepsia [Unknown]
  - Headache [Unknown]
  - Pruritus [Unknown]
  - Peripheral coldness [Unknown]
  - Insomnia [Unknown]
  - Chest pain [Unknown]
  - Arrhythmia [Unknown]
  - Cough [Unknown]
  - Dyspnoea [Unknown]
